FAERS Safety Report 24361749 (Version 2)
Quarter: 2025Q2

REPORT INFORMATION
  Report Type: Spontaneous
  Country: IT (occurrence: IT)
  Receive Date: 20240925
  Receipt Date: 20250506
  Transmission Date: 20250716
  Serious: Yes (Life-Threatening, Hospitalization, Other)
  Sender: AUROBINDO
  Company Number: IT-AMGEN-ITASP2021175416

PATIENT
  Age: 41 Year
  Sex: Male

DRUGS (3)
  1. CINACALCET [Suspect]
     Active Substance: CINACALCET
     Indication: Hyperparathyroidism secondary
     Dosage: 180 MILLIGRAM, ONCE A DAY (180 MILLIGRAM, QD)
     Route: 065
     Dates: start: 201001
  2. CINACALCET [Suspect]
     Active Substance: CINACALCET
     Dosage: 30 MILLIGRAM, ONCE A DAY (30 MILLIGRAM, QD)
     Route: 065
     Dates: start: 201001
  3. CINACALCET [Suspect]
     Active Substance: CINACALCET
     Route: 065
     Dates: start: 2011

REACTIONS (10)
  - Papillary thyroid cancer [Unknown]
  - Device related infection [Unknown]
  - Hypocalcaemia [Unknown]
  - Arteriovenous fistula site complication [Unknown]
  - Osteopenia [Unknown]
  - Mood altered [Unknown]
  - Arthralgia [Unknown]
  - Anaemia [Unknown]
  - Subarachnoid haemorrhage [Recovered/Resolved]
  - Drug resistance [Unknown]
